FAERS Safety Report 9100854 (Version 1)
Quarter: 2013Q1

REPORT INFORMATION
  Report Type: Spontaneous
  Country: BR (occurrence: BR)
  Receive Date: 20130215
  Receipt Date: 20130215
  Transmission Date: 20140127
  Serious: Yes (Death)
  Sender: FDA-Public Use
  Company Number: PHHY2013BR014626

PATIENT
  Sex: Female

DRUGS (1)
  1. EXELON PATCH [Suspect]
     Indication: PARKINSON^S DISEASE
     Dosage: 4.6 MG / 24 HOURS (9MG/5CM2)
     Route: 062

REACTIONS (1)
  - Death [Fatal]
